FAERS Safety Report 4505174-X (Version None)
Quarter: 2004Q4

REPORT INFORMATION
  Report Type: 
  Country: None (occurrence: None)
  Receive Date: 20041014
  Receipt Date: 20030909
  Transmission Date: 20050328
  Serious: Yes (Hospitalization)
  Sender: FDA-Public Use
  Company Number: MP03-181

PATIENT
  Sex: Female

DRUGS (1)
  1. BACTRIM [Suspect]

REACTIONS (1)
  - HYPERSENSITIVITY [None]
